FAERS Safety Report 17616881 (Version 1)
Quarter: 2020Q2

REPORT INFORMATION
  Report Type: Spontaneous
  Country: US (occurrence: US)
  Receive Date: 20200402
  Receipt Date: 20200402
  Transmission Date: 20200713
  Serious: No
  Sender: FDA-Public Use
  Company Number: None

PATIENT
  Age: 52 Year
  Sex: Male
  Weight: 72.9 kg

DRUGS (6)
  1. ASPIRIN. [Concomitant]
     Active Substance: ASPIRIN
  2. AMLODIPINE [Concomitant]
     Active Substance: AMLODIPINE BESYLATE
  3. LIVALO [Concomitant]
     Active Substance: PITAVASTATIN CALCIUM
  4. XYZAL ALLERGY 24HR [Suspect]
     Active Substance: LEVOCETIRIZINE DIHYDROCHLORIDE
     Indication: ALLERGIC RESPIRATORY DISEASE
     Dosage: ?          QUANTITY:1 TABLET(S);?
     Route: 048
  5. MULTI-VITAMIN SUPPLEMENT [Concomitant]
     Active Substance: VITAMINS
  6. LORSARTAN [Concomitant]
     Active Substance: LOSARTAN

REACTIONS (2)
  - Scab [None]
  - Pruritus [None]

NARRATIVE: CASE EVENT DATE: 20200305
